FAERS Safety Report 12812318 (Version 2)
Quarter: 2016Q4

REPORT INFORMATION
  Report Type: Spontaneous
  Country: FR (occurrence: FR)
  Receive Date: 20161005
  Receipt Date: 20161208
  Transmission Date: 20170207
  Serious: Yes (Hospitalization)
  Sender: FDA-Public Use
  Company Number: PHHY2016FR136010

PATIENT
  Age: 27 Year
  Sex: Female
  Weight: 42 kg

DRUGS (4)
  1. COLIMYCIN [Suspect]
     Active Substance: COLISTIMETHATE SODIUM
     Indication: INFECTION
     Dosage: 2 MUI, BID
     Route: 055
     Dates: start: 20160912, end: 20160919
  2. TOBI [Suspect]
     Active Substance: TOBRAMYCIN
     Indication: INFECTION
     Dosage: 300 MG, BID
     Route: 055
     Dates: start: 20160912, end: 20160918
  3. COLIMYCIN [Suspect]
     Active Substance: COLISTIMETHATE SODIUM
     Indication: INFECTION
     Dosage: 4.5 MUI, BID
     Route: 042
     Dates: start: 20160913, end: 20160919
  4. NEBCIN [Suspect]
     Active Substance: TOBRAMYCIN SULFATE
     Indication: INFECTION
     Dosage: 200 MG, QD
     Route: 042
     Dates: start: 20160908, end: 20160915

REACTIONS (1)
  - Acute kidney injury [Recovered/Resolved]

NARRATIVE: CASE EVENT DATE: 20160916
